FAERS Safety Report 6689950-3 (Version None)
Quarter: 2010Q2

REPORT INFORMATION
  Report Type: 
  Country: None (occurrence: None)
  Receive Date: 20100421
  Receipt Date: 20100409
  Transmission Date: 20101027
  Serious: Yes (Other)
  Sender: FDA-Public Use
  Company Number: DE-PFIZER INC-2010045204

PATIENT

DRUGS (1)
  1. SUTENT [Suspect]

REACTIONS (1)
  - ANAL ABSCESS [None]
